FAERS Safety Report 13743740 (Version 3)
Quarter: 2018Q1

REPORT INFORMATION
  Report Type: Spontaneous
  Country: US (occurrence: US)
  Receive Date: 20170711
  Receipt Date: 20180117
  Transmission Date: 20180508
  Serious: Yes (Hospitalization)
  Sender: FDA-Public Use
  Company Number: US-NEUROCRINE BIOSCIENCES INC.-2017NBI00395

PATIENT
  Age: 48 Year
  Sex: Female
  Weight: 90.8 kg

DRUGS (11)
  1. TRILEPTAL [Concomitant]
     Active Substance: OXCARBAZEPINE
  2. PROPRANOLOL [Concomitant]
     Active Substance: PROPRANOLOL HYDROCHLORIDE
  3. ARMOUR THYROID [Concomitant]
     Active Substance: THYROID, PORCINE
     Dosage: IN THE MORNING
  4. INGREZZA [Suspect]
     Active Substance: VALBENAZINE
     Route: 048
     Dates: start: 2017
  5. INGREZZA [Suspect]
     Active Substance: VALBENAZINE
     Dosage: AT NIGHT
     Route: 048
     Dates: start: 20170510, end: 2017
  6. BENZTROPIN [Concomitant]
  7. LITHIUM. [Concomitant]
     Active Substance: LITHIUM
  8. NEURONTIN [Concomitant]
     Active Substance: GABAPENTIN
  9. VIBERZI [Concomitant]
     Active Substance: ELUXADOLINE
  10. INGREZZA [Suspect]
     Active Substance: VALBENAZINE
     Indication: TARDIVE DYSKINESIA
     Route: 048
     Dates: start: 20170503, end: 20170509
  11. INGREZZA [Suspect]
     Active Substance: VALBENAZINE
     Route: 048
     Dates: start: 2017, end: 2017

REACTIONS (6)
  - Sinus headache [Recovered/Resolved]
  - Insomnia [Recovered/Resolved]
  - Aphasia [Recovered/Resolved]
  - Bipolar disorder [Recovered/Resolved]
  - Feeling abnormal [Recovered/Resolved]
  - Cough [Recovered/Resolved]

NARRATIVE: CASE EVENT DATE: 2017
